FAERS Safety Report 8003968-X (Version None)
Quarter: 2011Q4

REPORT INFORMATION
  Report Type: 
  Country: None (occurrence: None)
  Receive Date: 20111222
  Receipt Date: 20111216
  Transmission Date: 20120403
  Serious: Yes (Hospitalization, Disabling)
  Sender: FDA-Public Use
  Company Number: JP-ROCHE-798721

PATIENT
  Sex: Female

DRUGS (5)
  1. LEVOLEUCOVORIN CALCIUM [Concomitant]
     Indication: RECTAL CANCER
     Dosage: DOSAGE IS UNCERTAIN, DRUG REPORTED AS LEVOFOLINATE CALCIUM
     Route: 041
  2. FLUOROURACIL [Concomitant]
     Indication: RECTAL CANCER
     Dosage: DOSAGE IS UNCERTAIN
     Route: 040
  3. ADONA [Concomitant]
     Dosage: DOSAGE IS UNCERTAIN.
  4. AVASTIN [Suspect]
     Indication: RECTAL CANCER
     Route: 041
  5. TRANEXAMIC ACID [Concomitant]

REACTIONS (2)
  - FALL [None]
  - FEMORAL NECK FRACTURE [None]
